FAERS Safety Report 8258235-6 (Version None)
Quarter: 2012Q2

REPORT INFORMATION
  Report Type: 
  Country: None (occurrence: None)
  Receive Date: 20120404
  Receipt Date: 20120326
  Transmission Date: 20120825
  Serious: Yes (Other)
  Sender: FDA-Public Use
  Company Number: US-AMGEN-USASP2012020548

PATIENT

DRUGS (6)
  1. EPOGEN [Suspect]
     Dosage: 10 IU, UNK
     Route: 023
  2. EPOGEN [Suspect]
     Dosage: 100 IU, UNK
     Route: 023
  3. EPOGEN [Suspect]
     Dosage: 1 IU, UNK
     Route: 023
  4. EPOGEN [Suspect]
     Dosage: 2000 IU, UNK
     Route: 058
  5. EPOGEN [Suspect]
     Indication: HAEMODIALYSIS
     Dosage: 10000 IU, UNK
  6. EPOGEN [Suspect]
     Dosage: 1000 IU, UNK
     Route: 023

REACTIONS (1)
  - ANAPHYLACTIC REACTION [None]
